FAERS Safety Report 9253366 (Version 2)
Quarter: 2014Q1

REPORT INFORMATION
  Report Type: Spontaneous
  Country: US (occurrence: US)
  Receive Date: 20130425
  Receipt Date: 20140113
  Transmission Date: 20141002
  Serious: Yes (Hospitalization)
  Sender: FDA-Public Use
  Company Number: US-ASTRAZENECA-2013SE27340

PATIENT
  Age: 53 Year
  Sex: Female
  Weight: 86.2 kg

DRUGS (22)
  1. NEXIUM [Suspect]
     Indication: GASTROOESOPHAGEAL REFLUX DISEASE
     Route: 048
     Dates: start: 20060728
  2. NEXIUM [Suspect]
     Indication: GASTROOESOPHAGEAL REFLUX DISEASE
     Route: 048
     Dates: start: 20060728
  3. HYDROCODONE W/APAP [Concomitant]
     Dosage: 7.5/500 MG
     Dates: start: 20060501
  4. DIAZEPAM [Concomitant]
     Dates: start: 20060518
  5. CARISOPRODOL [Concomitant]
     Dates: start: 20060802
  6. TRAZADONE [Concomitant]
     Dates: start: 20070301
  7. SEROQUEL [Concomitant]
     Dates: start: 20070301
  8. CYMBALTA [Concomitant]
     Dates: start: 20070301
  9. PROMETHAZINE [Concomitant]
     Dates: start: 20070507
  10. TRAMADOL HCL [Concomitant]
     Dates: start: 20070517
  11. MORPHINE SULF [Concomitant]
     Dates: start: 20071005
  12. ALPRAZOLAM [Concomitant]
     Dates: start: 20071105
  13. KETOROLAC [Concomitant]
     Dates: start: 20071105
  14. AMITRIPTYLINE HCL [Concomitant]
     Dates: start: 20080131
  15. OXYBUTYNIN [Concomitant]
     Dates: start: 20080718
  16. METHYLPREDNISOLONE [Concomitant]
     Dates: start: 20090520
  17. CYCLOBENZAPRINE [Concomitant]
     Dates: start: 20090512
  18. METOPROLOL SUCCINATE [Concomitant]
     Dates: start: 20090526
  19. NAPROXEN SODIUM [Concomitant]
     Dates: start: 20090716
  20. ZYPREXA [Concomitant]
     Dates: start: 20040213
  21. IBUPROFEN [Concomitant]
     Dates: start: 20080707
  22. SIMVASTATIN [Concomitant]
     Dates: start: 20110608

REACTIONS (7)
  - Pneumocystis jirovecii pneumonia [Unknown]
  - Upper limb fracture [Unknown]
  - Osteoporosis [Unknown]
  - Bone disorder [Unknown]
  - Multiple fractures [Unknown]
  - Osteopenia [Unknown]
  - Osteoarthritis [Unknown]
